FAERS Safety Report 13642126 (Version 6)
Quarter: 2021Q1

REPORT INFORMATION
  Report Type: Report from Study
  Country: DE (occurrence: DE)
  Receive Date: 20170612
  Receipt Date: 20210129
  Transmission Date: 20210419
  Serious: Yes (Other)
  Sender: FDA-Public Use
  Company Number: DE-PFIZER INC-2017243429

PATIENT
  Age: 66 Year
  Sex: Female
  Weight: 67 kg

DRUGS (10)
  1. LETROZOLE. [Suspect]
     Active Substance: LETROZOLE
     Indication: HORMONE RECEPTOR POSITIVE BREAST CANCER
     Dosage: 2.5 MG, DAILY
     Route: 048
     Dates: start: 20161012
  2. MAGNESIUM VERLA [Concomitant]
     Active Substance: MAGNESIUM
     Indication: MUSCLE SPASMS
     Dosage: UNK
     Route: 048
     Dates: start: 20161124
  3. PALBOCICLIB [Suspect]
     Active Substance: PALBOCICLIB
     Indication: BREAST CANCER
     Dosage: 125 MG, DAILY
     Route: 048
     Dates: start: 20161012
  4. METFORMIN [Concomitant]
     Active Substance: METFORMIN HYDROCHLORIDE
     Indication: DIABETES MELLITUS
     Dosage: UNK
     Route: 048
     Dates: start: 2005
  5. VITAMIN C [Concomitant]
     Active Substance: ASCORBIC ACID
     Indication: PROPHYLAXIS
     Dosage: UNK
     Route: 048
     Dates: start: 2005
  6. L?THYROXIN [Concomitant]
     Active Substance: LEVOTHYROXINE SODIUM
     Indication: BASEDOW^S DISEASE
     Dosage: UNK
     Route: 048
     Dates: start: 2005
  7. VITAMIN D [Concomitant]
     Active Substance: VITAMIN D NOS
     Indication: PROPHYLAXIS
     Dosage: UNK
     Route: 048
     Dates: start: 2005
  8. VITAMIN D [Concomitant]
     Active Substance: VITAMIN D NOS
     Dosage: UNK
     Route: 048
     Dates: start: 20180312
  9. ATMADISC [Concomitant]
     Active Substance: FLUTICASONE PROPIONATE\SALMETEROL XINAFOATE
     Indication: ASTHMA
     Dosage: UNK
     Route: 055
     Dates: start: 1989
  10. ZOMETA [Concomitant]
     Active Substance: ZOLEDRONIC ACID
     Indication: PROPHYLAXIS
     Dosage: UNK
     Route: 042
     Dates: start: 20160609

REACTIONS (2)
  - Deep vein thrombosis [Recovering/Resolving]
  - Pulmonary embolism [Recovering/Resolving]

NARRATIVE: CASE EVENT DATE: 20161209
